FAERS Safety Report 20505522 (Version 1)
Quarter: 2022Q1

REPORT INFORMATION
  Report Type: Spontaneous
  Country: FR (occurrence: FR)
  Receive Date: 20220223
  Receipt Date: 20220223
  Transmission Date: 20220423
  Serious: Yes (Death, Other)
  Sender: FDA-Public Use
  Company Number: FR-STRIDES ARCOLAB LIMITED-2022SP001721

PATIENT
  Age: 50 Year
  Sex: Female

DRUGS (2)
  1. CYCLOSPORINE [Suspect]
     Active Substance: CYCLOSPORINE
     Indication: Dermatitis atopic
     Dosage: 200 MILLIGRAM PER DAY
     Route: 065
  2. METHOTREXATE [Suspect]
     Active Substance: METHOTREXATE
     Indication: Dermatitis atopic
     Dosage: 15 MILLIGRAM WEEKLY
     Route: 065

REACTIONS (5)
  - Pulmonary fibrosis [Fatal]
  - Cytomegalovirus infection [Fatal]
  - Hepatotoxicity [Unknown]
  - Dyslipidaemia [Unknown]
  - Off label use [Unknown]
